FAERS Safety Report 19548976 (Version 1)
Quarter: 2021Q3

REPORT INFORMATION
  Report Type: Spontaneous
  Country: US (occurrence: US)
  Receive Date: 20210715
  Receipt Date: 20210715
  Transmission Date: 20211014
  Serious: Yes (Hospitalization)
  Sender: FDA-Public Use
  Company Number: None

PATIENT
  Age: 32 Year
  Sex: Female
  Weight: 64.8 kg

DRUGS (1)
  1. XIFAXAN [Suspect]
     Active Substance: RIFAXIMIN
     Indication: GASTROINTESTINAL BACTERIAL OVERGROWTH
     Dates: start: 20210714, end: 20210714

REACTIONS (4)
  - Oral pruritus [None]
  - Paraesthesia oral [None]
  - Swollen tongue [None]
  - Confusional state [None]

NARRATIVE: CASE EVENT DATE: 20210714
